FAERS Safety Report 18310567 (Version 1)
Quarter: 2020Q3

REPORT INFORMATION
  Report Type: Spontaneous
  Country: CN (occurrence: CN)
  Receive Date: 20200925
  Receipt Date: 20200925
  Transmission Date: 20201103
  Serious: Yes (Hospitalization)
  Sender: FDA-Public Use
  Company Number: CN-BAXTER-2020BAX019263

PATIENT
  Age: 43 Year
  Sex: Female
  Weight: 43 kg

DRUGS (10)
  1. ENDOXAN [Suspect]
     Active Substance: CYCLOPHOSPHAMIDE
     Dosage: SECOND COURSE OF EAC INTRAVENOUS CHEMOTHERAPY, CYCLOPHOSPHAMIDE + 0.9% SODIUM CHLORIDE, DOSE RE?INTR
     Route: 041
     Dates: start: 20200914
  2. DEXAMETHASONE SODIUM PHOSPHATE. [Concomitant]
     Active Substance: DEXAMETHASONE SODIUM PHOSPHATE
     Indication: ALLERGY PROPHYLAXIS
     Route: 065
     Dates: start: 20200914
  3. ENDOXAN [Suspect]
     Active Substance: CYCLOPHOSPHAMIDE
     Indication: BREAST CANCER FEMALE
     Dosage: FIRST COURSE OF INTRAVENOUS CHEMOTHERAPY, CYCLOPHOSPHAMIDE + 0.9% SODIUM CHLORIDE (100ML)
     Route: 041
     Dates: start: 20200824, end: 20200824
  4. 0.9% SODIUM CHLORIDE INJECTION [Suspect]
     Active Substance: SODIUM CHLORIDE
     Indication: MEDICATION DILUTION
     Dosage: FIRST COURSE OF INTRAVENOUS CHEMOTHERAPY, SODIUM CHLORIDE + CYCLOPHOSPHAMIDE (0.8 G)
     Route: 041
     Dates: start: 20200824, end: 20200824
  5. 5% GLUCOSE  INJECTION [Suspect]
     Active Substance: DEXTROSE
     Indication: MEDICATION DILUTION
     Dosage: FIRST COURSE OF INTRAVENOUS CHEMOTHERAPY, GLUCOSE + PIRARUBICIN HYDROCHLORIDE (60MG)
     Route: 041
     Dates: start: 20200824, end: 20200824
  6. 5% GLUCOSE  INJECTION [Suspect]
     Active Substance: DEXTROSE
     Dosage: SECOND COURSE OF EAC INTRAVENOUS CHEMOTHERAPY, GLUCOSE + PIRARUBICIN HYDROCHLORIDE,DOSE RE?INTRODUCE
     Route: 041
     Dates: start: 20200914
  7. PIRARUBICIN HYDROCHLORIDE [Suspect]
     Active Substance: PIRARUBICIN HYDROCHLORIDE
     Indication: BREAST CANCER FEMALE
     Dosage: FIRST COURSE OF INTRAVENOUS CHEMOTHERAPY, PIRARUBICIN HYDROCHLORIDE + 5% GLUCOSE (100ML)
     Route: 041
     Dates: start: 20200824, end: 20200824
  8. 0.9% SODIUM CHLORIDE INJECTION [Suspect]
     Active Substance: SODIUM CHLORIDE
     Dosage: SECOND COURSE OF EAC INTRAVENOUS CHEMOTHERAPY, SODIUM CHLORIDE + CYCLOPHOSPHAMIDE, DOSE RE?INTRODUCE
     Route: 041
     Dates: start: 20200914
  9. PIRARUBICIN HYDROCHLORIDE [Suspect]
     Active Substance: PIRARUBICIN HYDROCHLORIDE
     Dosage: SECOND COURSE OF EAC INTRAVENOUS CHEMOTHERAPY, PIRARUBICIN HYDROCHLORIDE + 5% GLUCOSE, DOSE RE?INTRO
     Route: 041
     Dates: start: 20200914
  10. PALONOSETRON HYDROCHLORIDE. [Concomitant]
     Active Substance: PALONOSETRON HYDROCHLORIDE
     Indication: DRUG THERAPY
     Route: 065
     Dates: start: 20200914

REACTIONS (1)
  - Myelosuppression [Recovering/Resolving]

NARRATIVE: CASE EVENT DATE: 20200911
